FAERS Safety Report 9792147 (Version 2)
Quarter: 2014Q1

REPORT INFORMATION
  Report Type: Spontaneous
  Country: GB (occurrence: GB)
  Receive Date: 20140102
  Receipt Date: 20140102
  Transmission Date: 20141002
  Serious: Yes (Other)
  Sender: FDA-Public Use
  Company Number: GB-TEVA-451427ISR

PATIENT
  Age: 64 Year
  Sex: Male

DRUGS (5)
  1. TRAMADOL [Suspect]
     Indication: POSTOPERATIVE ANALGESIA
     Dosage: 50-100-MG QDSPRN
     Route: 048
     Dates: start: 20131115
  2. PARACETAMOL BRISTOL LABS [Concomitant]
     Indication: ANALGESIC THERAPY
     Dosage: 4 GRAM DAILY; DAILY DOSE: QDSPRN
     Route: 048
     Dates: start: 20131113
  3. CELECOXIB PFIZER [Concomitant]
     Indication: ANALGESIC THERAPY
     Dosage: 400 MILLIGRAM DAILY;
     Route: 048
     Dates: start: 20131113
  4. DABIGATRAN BOEHRINGER INGELHEIM [Concomitant]
     Indication: THROMBOSIS PROPHYLAXIS
     Dosage: 2X7 MG  FOR POST TKR.
     Route: 048
     Dates: start: 20131113
  5. OMEPRAZOLE JENSEN [Concomitant]
     Indication: GASTRITIS PROPHYLAXIS
     Dosage: DAILY DOSAGE: OM
     Dates: start: 20131113

REACTIONS (2)
  - Urinary retention [Recovered/Resolved]
  - Prostatomegaly [Unknown]
